FAERS Safety Report 11730336 (Version 1)
Quarter: 2015Q4

REPORT INFORMATION
  Report Type: Report from Study
  Country: US (occurrence: US)
  Receive Date: 20151112
  Receipt Date: 20151112
  Transmission Date: 20160304
  Serious: No
  Sender: FDA-Public Use
  Company Number: GXBR2015US002414

PATIENT
  Sex: Female

DRUGS (3)
  1. OMNITROPE [Suspect]
     Active Substance: SOMATROPIN
     Indication: HYPOPITUITARISM
     Dosage: 2.4 MG, SIX DAYS PER WEEK
     Route: 065
     Dates: start: 201509
  2. HIDROCORTISON [Concomitant]
     Active Substance: HYDROCORTISONE
     Dosage: 12.5 MG, QD
     Route: 048
  3. LEVOTHYROXINE. [Concomitant]
     Active Substance: LEVOTHYROXINE
     Indication: HYPOTHYROIDISM
     Dosage: 112 UG, QD
     Route: 048

REACTIONS (4)
  - Abdominal pain upper [Not Recovered/Not Resolved]
  - Vomiting [Not Recovered/Not Resolved]
  - Nausea [Not Recovered/Not Resolved]
  - Headache [Not Recovered/Not Resolved]
